FAERS Safety Report 4555885-5 (Version None)
Quarter: 2005Q1

REPORT INFORMATION
  Report Type: 
  Country: None (occurrence: None)
  Receive Date: 20050119
  Receipt Date: 20050107
  Transmission Date: 20050727
  Serious: Yes (Hospitalization)
  Sender: FDA-Public Use
  Company Number: BR-ROCHE-391850

PATIENT
  Age: 21 Year
  Sex: Male
  Weight: 70 kg

DRUGS (3)
  1. ROACUTAN [Suspect]
     Indication: ACNE
     Dosage: STRENGTH REPORTED AS 20 MG.
     Route: 048
     Dates: start: 20031215
  2. ROACUTAN [Suspect]
     Dosage: STRENGTH REPORTED AS 10 MG.
     Route: 048
     Dates: start: 20040615
  3. ROACUTAN [Suspect]
     Dosage: STRENGTH REPORTED AS 20 MG.
     Route: 048
     Dates: end: 20041118

REACTIONS (4)
  - LUNG INFILTRATION [None]
  - PLEURAL EFFUSION [None]
  - PNEUMOTHORAX [None]
  - SUBCUTANEOUS EMPHYSEMA [None]
